FAERS Safety Report 5865865-5 (Version None)
Quarter: 2008Q3

REPORT INFORMATION
  Report Type: 
  Country: None (occurrence: None)
  Receive Date: 20080829
  Receipt Date: 20080822
  Transmission Date: 20090109
  Serious: Yes (Other)
  Sender: FDA-Public Use
  Company Number: US-JNJCH-2008021966

PATIENT
  Sex: Female

DRUGS (1)
  1. LISTERINE WHITENING PRE-BRUSH RINSE [Suspect]
     Indication: DENTAL CARE
     Dosage: TEXT:UNSPECIFIED
     Route: 048

REACTIONS (4)
  - ABSCESS [None]
  - APPLICATION SITE BURN [None]
  - DYSPHAGIA [None]
  - PAIN [None]
